FAERS Safety Report 23458823 (Version 2)
Quarter: 2024Q1

REPORT INFORMATION
  Report Type: Report from Study
  Country: GB (occurrence: GB)
  Receive Date: 20240131
  Receipt Date: 20240219
  Transmission Date: 20240409
  Serious: Yes (Other)
  Sender: FDA-Public Use
  Company Number: GB-Merck Healthcare KGaA-2024004941

PATIENT
  Age: 23 Year
  Sex: Female

DRUGS (2)
  1. MAVENCLAD [Suspect]
     Active Substance: CLADRIBINE
     Indication: Multiple sclerosis
     Dosage: YEAR ONE WEEK ONE THERAPY
     Route: 048
     Dates: start: 20220509
  2. MAVENCLAD [Suspect]
     Active Substance: CLADRIBINE
     Dosage: YEAR ONE WEEK FIVE THERAPY
     Route: 048
     Dates: start: 20221212

REACTIONS (5)
  - Lower respiratory tract infection [Unknown]
  - Kidney infection [Unknown]
  - Oropharyngeal pain [Not Recovered/Not Resolved]
  - Odynophagia [Unknown]
  - Lymphadenopathy [Unknown]

NARRATIVE: CASE EVENT DATE: 20231001
